FAERS Safety Report 10747572 (Version 1)
Quarter: 2015Q1

REPORT INFORMATION
  Report Type: Spontaneous
  Country: IT (occurrence: IT)
  Receive Date: 20150129
  Receipt Date: 20150129
  Transmission Date: 20150721
  Serious: Yes (Hospitalization)
  Sender: FDA-Public Use
  Company Number: IT-AUROBINDO-AUR-APL-2015-00636

PATIENT
  Age: 38 Year
  Sex: Male

DRUGS (2)
  1. AMOXICILLIN+CLAVULANIC ACID FILM-COATED TABLETS [Suspect]
     Active Substance: AMOXICILLIN\CLAVULANIC ACID
     Indication: DENTAL CARE
     Dosage: 2 DF, DAILY
     Route: 065
     Dates: start: 20140922, end: 20140926
  2. NIMESULIDE GRANULES FOR ORAL SUSPENSION [Suspect]
     Active Substance: NIMESULIDE
     Indication: TOOTHACHE
     Dosage: 1 DF, DAILY
     Route: 048
     Dates: start: 20140922, end: 20140926

REACTIONS (1)
  - Rash maculo-papular [Recovering/Resolving]

NARRATIVE: CASE EVENT DATE: 20140928
